FAERS Safety Report 7721822-5 (Version None)
Quarter: 2011Q3

REPORT INFORMATION
  Report Type: 
  Country: None (occurrence: None)
  Receive Date: 20110831
  Receipt Date: 20110829
  Transmission Date: 20111222
  Serious: Yes (Other)
  Sender: FDA-Public Use
  Company Number: ES-MERCK-1108ESP00026

PATIENT
  Age: 56 Year
  Sex: Female

DRUGS (4)
  1. DEXKETOPROFEN TROMETHAMINE [Concomitant]
     Indication: MIGRAINE
     Route: 048
     Dates: start: 20110125
  2. HYDROCHLOROTHIAZIDE AND VALSARTAN [Concomitant]
     Indication: HYPERTENSION
     Route: 048
     Dates: start: 20100317
  3. MAXALT [Suspect]
     Indication: MIGRAINE
     Route: 048
     Dates: start: 20110125, end: 20110125
  4. CLOPIDOGREL BISULFATE [Concomitant]
     Indication: ANTIPHOSPHOLIPID SYNDROME
     Route: 048
     Dates: start: 20100101

REACTIONS (5)
  - FEELING COLD [None]
  - PALPITATIONS [None]
  - HEADACHE [None]
  - ABDOMINAL PAIN UPPER [None]
  - NAUSEA [None]
